FAERS Safety Report 8242703-7 (Version None)
Quarter: 2012Q1

REPORT INFORMATION
  Report Type: 
  Country: None (occurrence: None)
  Receive Date: 20120329
  Receipt Date: 20120319
  Transmission Date: 20120608
  Serious: Yes (Life-Threatening, Other)
  Sender: FDA-Public Use
  Company Number: US-JNJFOC-20120309141

PATIENT
  Age: 15 Year
  Sex: Male

DRUGS (3)
  1. REMICADE [Suspect]
     Indication: CROHN'S DISEASE
     Route: 042
     Dates: start: 20110101, end: 20120101
  2. REMICADE [Suspect]
     Route: 042
  3. IMURAN [Concomitant]
     Indication: CROHN'S DISEASE
     Route: 065

REACTIONS (2)
  - ABSCESS [None]
  - DRUG INEFFECTIVE [None]
